FAERS Safety Report 23229825 (Version 1)
Quarter: 2023Q4

REPORT INFORMATION
  Report Type: Spontaneous
  Country: IE (occurrence: IE)
  Receive Date: 20231127
  Receipt Date: 20231127
  Transmission Date: 20240110
  Serious: Yes (Other)
  Sender: FDA-Public Use
  Company Number: IE-STERISCIENCE B.V.-2023-ST-002231

PATIENT
  Sex: Male

DRUGS (5)
  1. LABETALOL [Suspect]
     Active Substance: LABETALOL\LABETALOL HYDROCHLORIDE
     Indication: Product used for unknown indication
     Dosage: THE PATIENTS MOTHER DOSE WAS NOT REPORTED
     Route: 064
  2. CARBIMAZOLE [Suspect]
     Active Substance: CARBIMAZOLE
     Indication: Product used for unknown indication
     Dosage: THE PATIENTS MOTHER DOSE WAS 30 MILLIGRAM, THREE TIMES DAILY
     Route: 064
  3. PROPRANOLOL [Suspect]
     Active Substance: PROPRANOLOL HYDROCHLORIDE
     Indication: Product used for unknown indication
     Dosage: THE PATIENTS MOTHER DOSE WAS 80 MILLIGRAM, QD
     Route: 064
  4. PROPYLTHIOURACIL [Suspect]
     Active Substance: PROPYLTHIOURACIL
     Indication: Product used for unknown indication
     Dosage: THE PATIENTS MOTHER DOSE WAS NOT REPORTED
     Route: 064
  5. IODINE\POTASSIUM IODIDE [Suspect]
     Active Substance: IODINE\POTASSIUM IODIDE
     Indication: Product used for unknown indication
     Dosage: THE PATIENTS MOTHER DOSE WAS NOT REPORTED
     Route: 064

REACTIONS (3)
  - Neonatal thyrotoxicosis [Unknown]
  - Premature baby [Unknown]
  - Foetal exposure during pregnancy [Unknown]
